FAERS Safety Report 6431777-1 (Version None)
Quarter: 2009Q4

REPORT INFORMATION
  Report Type: 
  Country: None (occurrence: None)
  Receive Date: 20091104
  Receipt Date: 20091023
  Transmission Date: 20100525
  Serious: Yes (Hospitalization, Other)
  Sender: FDA-Public Use
  Company Number: 230643J08CAN

PATIENT
  Age: 57 Year
  Sex: Female

DRUGS (17)
  1. REBIF [Suspect]
     Indication: MULTIPLE SCLEROSIS
     Dosage: 22  MCG, 3 IN 1 WEEKS
     Dates: start: 20010621
  2. COVERSYL ( PERINDOPRIL) [Concomitant]
  3. LONAZEPAM (CLONAZEPAM) [Concomitant]
  4. EFFEXOR [Concomitant]
  5. DIOVAN [Concomitant]
  6. CRESTOR [Concomitant]
  7. NEURONTIN [Concomitant]
  8. BACLOFEN [Concomitant]
  9. SYNTHROID [Concomitant]
  10. DETROL [Concomitant]
  11. CELEBREX [Concomitant]
  12. MULTIVITAMIN [Concomitant]
  13. VITAMIN D [Concomitant]
  14. VITAMIN B12 (CYANOCOBALANIN) [Concomitant]
  15. OMEGA 3-6-9 (OMEGA  /01454401/) [Concomitant]
  16. GLUCOSAMINE (GLUCOSAMINE /00943601/) [Concomitant]
  17. CHONDROITIN (GLUCOSAMINE W/CHONDROITIN SULF./MANGAN./VIT C) [Concomitant]

REACTIONS (32)
  - ARTHRALGIA [None]
  - BONE PAIN [None]
  - BREAST CANCER [None]
  - CEREBROVASCULAR ACCIDENT [None]
  - CHOKING [None]
  - CONTUSION [None]
  - DEPRESSION [None]
  - EATING DISORDER [None]
  - FATIGUE [None]
  - HEADACHE [None]
  - HEPATIC ENZYME INCREASED [None]
  - INFLUENZA LIKE ILLNESS [None]
  - INJECTION SITE ERYTHEMA [None]
  - INJECTION SITE HAEMATOMA [None]
  - INJECTION SITE MASS [None]
  - INJECTION SITE REACTION [None]
  - INSOMNIA [None]
  - MALAISE [None]
  - MULTIPLE SCLEROSIS RELAPSE [None]
  - MUSCLE SPASMS [None]
  - MUSCULAR WEAKNESS [None]
  - MYOCARDIAL INFARCTION [None]
  - NYSTAGMUS [None]
  - PAIN IN EXTREMITY [None]
  - ROAD TRAFFIC ACCIDENT [None]
  - SCAR [None]
  - SENSATION OF HEAVINESS [None]
  - SLEEP APNOEA SYNDROME [None]
  - SUICIDAL IDEATION [None]
  - TREMOR [None]
  - VISION BLURRED [None]
  - WOUND HAEMORRHAGE [None]
